FAERS Safety Report 11769557 (Version 4)
Quarter: 2017Q4

REPORT INFORMATION
  Report Type: Spontaneous
  Country: US (occurrence: US)
  Receive Date: 20151123
  Receipt Date: 20171020
  Transmission Date: 20180320
  Serious: Yes (Hospitalization)
  Sender: FDA-Public Use
  Company Number: US-ELI_LILLY_AND_COMPANY-US201511005746

PATIENT
  Age: 60 Year
  Sex: Male

DRUGS (10)
  1. TESTOSTERONE CYPIONATE. [Suspect]
     Active Substance: TESTOSTERONE CYPIONATE
     Dosage: UNK, DAILY
     Route: 065
     Dates: start: 20120628
  2. DULOXETINE. [Concomitant]
     Active Substance: DULOXETINE
     Indication: ANTIDEPRESSANT THERAPY
     Dosage: UNK UNK, UNKNOWN
     Route: 065
     Dates: start: 20140112, end: 20140902
  3. DULOXETINE. [Concomitant]
     Active Substance: DULOXETINE
     Dosage: UNK, UNKNOWN
     Route: 065
     Dates: start: 20141027, end: 20150323
  4. DULOXETINE. [Concomitant]
     Active Substance: DULOXETINE
     Dosage: UNK, UNKNOWN
     Route: 065
     Dates: start: 20150422
  5. EFFIENT [Concomitant]
     Active Substance: PRASUGREL HYDROCHLORIDE
     Indication: COAGULOPATHY
     Dosage: UNK
     Route: 065
     Dates: start: 20150604, end: 20150904
  6. FARXIGA [Concomitant]
     Active Substance: DAPAGLIFLOZIN PROPANEDIOL
     Indication: DIABETES MELLITUS
     Dosage: UNK, UNKNOWN
     Route: 065
     Dates: start: 20150320, end: 20150910
  7. AXIRON [Suspect]
     Active Substance: TESTOSTERONE
     Dosage: 2 DF, DAILY
     Route: 065
     Dates: start: 20141210, end: 20150209
  8. AXIRON [Suspect]
     Active Substance: TESTOSTERONE
     Indication: ANDROGEN REPLACEMENT THERAPY
     Dosage: UNK, UNKNOWN
     Route: 065
     Dates: start: 20130922, end: 20140108
  9. METOPROLOL. [Concomitant]
     Active Substance: METOPROLOL
     Indication: BLOOD PRESSURE ABNORMAL
     Dosage: UNK
     Route: 065
     Dates: start: 20150529, end: 20150904
  10. TESTOSTERONE CYPIONATE. [Suspect]
     Active Substance: TESTOSTERONE CYPIONATE
     Indication: ANDROGEN REPLACEMENT THERAPY
     Dosage: UNK, DAILY
     Route: 065
     Dates: start: 20120224

REACTIONS (4)
  - Thrombosis [Unknown]
  - Asthenia [Not Recovered/Not Resolved]
  - Myocardial infarction [Unknown]
  - Angina unstable [Unknown]

NARRATIVE: CASE EVENT DATE: 20150427
